FAERS Safety Report 8444650-4 (Version None)
Quarter: 2012Q2

REPORT INFORMATION
  Report Type: 
  Country: None (occurrence: None)
  Receive Date: 20120323
  Receipt Date: 20110808
  Transmission Date: 20120825
  Serious: Yes (Other)
  Sender: FDA-Public Use
  Company Number: 163-21880-11061315

PATIENT
  Age: 60 Year
  Sex: Male

DRUGS (2)
  1. REVLIMID [Suspect]
     Indication: MULTIPLE MYELOMA
     Dosage: 25 MG, 3 WEEKS ON 1 WEEK OFF, PO, ONE A DAY
     Route: 048
     Dates: start: 20110201
  2. ASA (ACETYLSALICYIC ACID) [Concomitant]

REACTIONS (1)
  - DEEP VEIN THROMBOSIS [None]
